FAERS Safety Report 5913188-8 (Version None)
Quarter: 2008Q3

REPORT INFORMATION
  Report Type: 
  Country: None (occurrence: None)
  Receive Date: 20080909
  Receipt Date: 20080425
  Transmission Date: 20090109
  Serious: Yes (Hospitalization)
  Sender: FDA-Public Use
  Company Number: 163-20785-07100261 (0)

PATIENT
  Age: 43 Year
  Sex: Male

DRUGS (10)
  1. THALOMID [Suspect]
     Indication: MULTIPLE MYELOMA
     Dosage: 100 MG, 1 IN 1 D, ORAL : 200 MG, DAILY, ORAL : 100-200MG, DAILY, ORAL
     Route: 048
     Dates: start: 20050815, end: 20060601
  2. THALOMID [Suspect]
     Indication: MULTIPLE MYELOMA
     Dosage: 100 MG, 1 IN 1 D, ORAL : 200 MG, DAILY, ORAL : 100-200MG, DAILY, ORAL
     Route: 048
     Dates: start: 20060628, end: 20071001
  3. THALOMID [Suspect]
     Indication: MULTIPLE MYELOMA
     Dosage: 100 MG, 1 IN 1 D, ORAL : 200 MG, DAILY, ORAL : 100-200MG, DAILY, ORAL
     Route: 048
     Dates: start: 20071003
  4. DECADRON [Concomitant]
  5. WARFARIN SODIUM [Concomitant]
  6. AREDIA [Concomitant]
  7. METFORMIN HCL [Concomitant]
  8. GLYBURIDE [Concomitant]
  9. LEVOXYL [Concomitant]
  10. INSULIN (INSULIN) [Concomitant]

REACTIONS (4)
  - CELLULITIS [None]
  - MYALGIA [None]
  - NEUROPATHY PERIPHERAL [None]
  - PAIN IN EXTREMITY [None]
